FAERS Safety Report 8271345-2 (Version None)
Quarter: 2012Q2

REPORT INFORMATION
  Report Type: 
  Country: None (occurrence: None)
  Receive Date: 20120410
  Receipt Date: 20120406
  Transmission Date: 20120825
  Serious: Yes (Other)
  Sender: FDA-Public Use
  Company Number: US-PFIZER INC-2012070191

PATIENT
  Sex: Female
  Weight: 95.238 kg

DRUGS (9)
  1. CODEINE [Suspect]
     Dosage: UNK
  2. PLAVIX [Concomitant]
     Indication: CARDIAC DISORDER
     Dosage: 75 MG, DAILY
  3. NAPROXEN (ALEVE) [Suspect]
     Indication: PAIN
     Dosage: UNK
     Dates: start: 20120101
  4. FUROSEMIDE [Concomitant]
     Indication: DIURETIC THERAPY
     Dosage: 40 OR 80 MG AS NEEDED
  5. ATORVASTATIN CALCIUM [Suspect]
     Indication: BLOOD CHOLESTEROL ABNORMAL
     Dosage: 10 MG, DAILY
     Route: 048
     Dates: start: 20120118, end: 20120220
  6. CARVEDILOL [Concomitant]
     Indication: CARDIAC DISORDER
     Dosage: 5 MG, 2X/DAY
  7. HUMALOG [Concomitant]
     Indication: DIABETES MELLITUS
     Dosage: UNK, 2X/DAY
  8. IBUPROFEN [Suspect]
     Indication: PAIN
     Dosage: UNK
     Dates: start: 20120101
  9. TYLENOL (CAPLET) [Suspect]
     Indication: PAIN
     Dosage: UNK
     Dates: start: 20120101

REACTIONS (4)
  - MALAISE [None]
  - PAIN [None]
  - GAIT DISTURBANCE [None]
  - DRUG INEFFECTIVE [None]
